FAERS Safety Report 8033365-2 (Version None)
Quarter: 2012Q1

REPORT INFORMATION
  Report Type: 
  Country: None (occurrence: None)
  Receive Date: 20120110
  Receipt Date: 20120103
  Transmission Date: 20120608
  Serious: Yes (Other)
  Sender: FDA-Public Use
  Company Number: US-AMGEN-QUU375203

PATIENT
  Age: 35 Year
  Sex: Female

DRUGS (2)
  1. ENBREL [Suspect]
     Indication: PSORIATIC ARTHROPATHY
     Dosage: 50 MG, QWK
     Route: 058
     Dates: start: 20020801
  2. ENBREL [Suspect]
     Indication: RHEUMATOID ARTHRITIS

REACTIONS (9)
  - ABORTION SPONTANEOUS [None]
  - CLAVICLE FRACTURE [None]
  - MATERNAL EXPOSURE DURING PREGNANCY [None]
  - DIZZINESS [None]
  - FALL [None]
  - GASTRIC INFECTION [None]
  - INJECTION SITE PAIN [None]
  - IN VITRO FERTILISATION [None]
  - ANTIPHOSPHOLIPID SYNDROME [None]
